FAERS Safety Report 4609156-9 (Version None)
Quarter: 2005Q1

REPORT INFORMATION
  Report Type: 
  Country: None (occurrence: None)
  Receive Date: 20050311
  Receipt Date: 20050228
  Transmission Date: 20050727
  Serious: Yes (Hospitalization)
  Sender: FDA-Public Use
  Company Number: 2005039456

PATIENT
  Age: 55 Year
  Sex: Female
  Weight: 50.5 kg

DRUGS (7)
  1. DELTA-CORTEF [Suspect]
     Indication: RHEUMATOID ARTHRITIS
     Dosage: 5 MG (1 IN 1 D)
     Dates: start: 20010621
  2. ETANERCEPT (ETANERCEPT) [Suspect]
     Indication: RHEUMATOID ARTHRITIS
     Dosage: 5 MG (1 IN 1 D), SUBCUTANEOUS
     Route: 058
     Dates: start: 20010530
  3. LOXOPROFEN (LOXOPROFEN) [Suspect]
     Indication: RHEUMATOID ARTHRITIS
     Dosage: 90 MG (1 IN 1 D)
     Dates: start: 20020104
  4. DICLOFENAC SODIUM [Suspect]
     Indication: RHEUMATOID ARTHRITIS
     Dosage: 50 MG (1 IN 1 D)
     Dates: start: 20010822, end: 20040721
  5. MISOPROSTOL [Concomitant]
  6. RISEDRONIC ACID (RISEDRONIC ACID) [Concomitant]
  7. ASPARTATE CALCIUM (ASPARTATE CALCIUM) [Concomitant]

REACTIONS (3)
  - DUODENAL ULCER [None]
  - GASTROINTESTINAL HAEMORRHAGE [None]
  - HELICOBACTER INFECTION [None]
